FAERS Safety Report 8534299-7 (Version None)
Quarter: 2012Q3

REPORT INFORMATION
  Report Type: 
  Country: None (occurrence: None)
  Receive Date: 20120724
  Receipt Date: 20120713
  Transmission Date: 20120928
  Serious: Yes (Hospitalization, Other)
  Sender: FDA-Public Use
  Company Number: US-BAYER-2011-036937

PATIENT
  Age: 27 Year
  Sex: Female

DRUGS (6)
  1. CLONAZEPAM [Concomitant]
     Dosage: UNK
     Dates: start: 20090331, end: 20090904
  2. ADDERALL XR 10 [Concomitant]
     Indication: ATTENTION DEFICIT/HYPERACTIVITY DISORDER
     Dosage: UNK
     Dates: start: 20070101, end: 20120101
  3. YASMIN [Suspect]
     Indication: CONTRACEPTION
     Dosage: UNK
     Route: 048
     Dates: start: 20040801, end: 20060101
  4. AMPHETAMINE AND DEXTROAMPHETAMINE SALTS [Concomitant]
     Dosage: UNK
     Dates: start: 20090429, end: 20120507
  5. YAZ [Suspect]
     Indication: CONTRACEPTION
     Dosage: UNK
     Route: 048
     Dates: start: 20060101, end: 20090930
  6. SERTRALINE HYDROCHLORIDE [Concomitant]
     Dosage: UNK
     Dates: start: 20090429, end: 20091030

REACTIONS (13)
  - MUSCLE SPASMS [None]
  - PAIN [None]
  - HEPATITIS [None]
  - PROCEDURAL COMPLICATION [None]
  - MALAISE [None]
  - GALLBLADDER DISORDER [None]
  - PYREXIA [None]
  - URINARY TRACT INFECTION [None]
  - DEPRESSION [None]
  - GALLBLADDER PAIN [None]
  - ACTIVITIES OF DAILY LIVING IMPAIRED [None]
  - NAUSEA [None]
  - PERFORATION BILE DUCT [None]
